FAERS Safety Report 6722999-0 (Version None)
Quarter: 2010Q2

REPORT INFORMATION
  Report Type: 
  Country: None (occurrence: None)
  Receive Date: 20100513
  Receipt Date: 20100504
  Transmission Date: 20101027
  Serious: No
  Sender: FDA-Public Use
  Company Number: US-BIOGENIDEC-2010BI015299

PATIENT
  Age: 43 Year
  Sex: Female

DRUGS (1)
  1. TYSABRI [Suspect]
     Indication: MULTIPLE SCLEROSIS
     Route: 042
     Dates: start: 20100105

REACTIONS (8)
  - BRONCHITIS [None]
  - CHEST PAIN [None]
  - COUGH [None]
  - FALL [None]
  - JOINT SPRAIN [None]
  - JOINT SWELLING [None]
  - NASOPHARYNGITIS [None]
  - RESPIRATORY TRACT IRRITATION [None]
